FAERS Safety Report 19304286 (Version 2)
Quarter: 2021Q3

REPORT INFORMATION
  Report Type: Spontaneous
  Country: IN (occurrence: IN)
  Receive Date: 20210525
  Receipt Date: 20210709
  Transmission Date: 20211014
  Serious: Yes (Other)
  Sender: FDA-Public Use
  Company Number: IN-PFIZER INC-2021583707

PATIENT
  Age: 49 Year
  Sex: Female

DRUGS (1)
  1. PALBACE [Suspect]
     Active Substance: PALBOCICLIB
     Indication: BREAST CANCER METASTATIC
     Dosage: 125 MG, 1X/DAY
     Route: 048
     Dates: start: 20210309

REACTIONS (12)
  - Haemoglobin decreased [Unknown]
  - Mean cell haemoglobin decreased [Unknown]
  - Red blood cell count decreased [Unknown]
  - Eosinophil percentage decreased [Unknown]
  - Platelet distribution width increased [Unknown]
  - Red cell distribution width increased [Unknown]
  - Haematocrit decreased [Unknown]
  - Lymphocyte morphology abnormal [Unknown]
  - Anisocytosis [Unknown]
  - Leukopenia [Unknown]
  - Lymphopenia [Unknown]
  - Basophil percentage increased [Unknown]

NARRATIVE: CASE EVENT DATE: 20210504
